FAERS Safety Report 9702879 (Version 4)
Quarter: 2014Q2

REPORT INFORMATION
  Report Type: Report from Study
  Country: IT (occurrence: IT)
  Receive Date: 20131121
  Receipt Date: 20140612
  Transmission Date: 20141212
  Serious: Yes (Hospitalization)
  Sender: FDA-Public Use
  Company Number: IT-ROCHE-1302793

PATIENT
  Age: 69 Year
  Sex: Male
  Weight: 113 kg

DRUGS (8)
  1. VEMURAFENIB [Suspect]
     Indication: METASTATIC MALIGNANT MELANOMA
     Dosage: MOST RECENT DOSE PRIOR TO THE EVENT WAS RECEIVED ON 26/SEP/2013
     Route: 048
     Dates: start: 20130913
  2. CLEXANE [Suspect]
     Indication: THROMBOSIS
     Route: 058
     Dates: start: 20130913
  3. COUMADIN [Concomitant]
     Indication: THROMBOSIS
     Route: 048
     Dates: start: 2011, end: 20130913
  4. OXYCONTIN [Concomitant]
     Indication: PAIN
     Route: 048
     Dates: start: 20130823, end: 20131002
  5. HYDROCORTISONE LOTION [Concomitant]
     Indication: RASH
     Route: 061
     Dates: start: 20130927
  6. MYCOSTATIN [Concomitant]
     Indication: MUCOSAL INFLAMMATION
     Route: 061
     Dates: start: 20131108
  7. AMOXICILLIN SODIUM/CLAVULANATE POTASSIUM [Concomitant]
     Indication: PYREXIA
     Route: 048
     Dates: start: 20131104, end: 20131108
  8. PLACEBO [Suspect]
     Indication: METASTATIC MALIGNANT MELANOMA
     Dosage: MOST RECENT DOSE PRIOR TO THE EVENT WAS RECEIVED ON 26/SEP/2013
     Route: 048
     Dates: start: 20130913

REACTIONS (1)
  - Anaemia [Not Recovered/Not Resolved]
